FAERS Safety Report 12983628 (Version 1)
Quarter: 2016Q4

REPORT INFORMATION
  Report Type: Spontaneous
  Country: DE (occurrence: DE)
  Receive Date: 20161129
  Receipt Date: 20161129
  Transmission Date: 20170207
  Serious: Yes (Other)
  Sender: FDA-Public Use
  Company Number: DE-PFIZER INC-2016548323

PATIENT
  Age: 66 Year
  Sex: Male

DRUGS (4)
  1. DOXORUBICIN HCL [Suspect]
     Active Substance: DOXORUBICIN HYDROCHLORIDE
     Indication: NON-SMALL CELL LUNG CANCER
     Dosage: ONE CYCLE OF ABVD
  2. VINBLASTINE [Suspect]
     Active Substance: VINBLASTINE
     Indication: NON-SMALL CELL LUNG CANCER
     Dosage: ONE CYCLE OF ABVD
  3. DACARBAZINE. [Suspect]
     Active Substance: DACARBAZINE
     Indication: NON-SMALL CELL LUNG CANCER
     Dosage: ONE CYCLE OF ABVD
  4. BLEOMYCIN [Suspect]
     Active Substance: BLEOMYCIN SULFATE
     Indication: NON-SMALL CELL LUNG CANCER
     Dosage: ONE CYCLE OF ABVD

REACTIONS (1)
  - Hyperbilirubinaemia [Unknown]
